FAERS Safety Report 8202321-3 (Version None)
Quarter: 2012Q1

REPORT INFORMATION
  Report Type: 
  Country: None (occurrence: None)
  Receive Date: 20120312
  Receipt Date: 20120307
  Transmission Date: 20120608
  Serious: Yes (Death, Other)
  Sender: FDA-Public Use
  Company Number: PHHY2011BR74246

PATIENT
  Sex: Male

DRUGS (1)
  1. EXFORGE [Suspect]
     Indication: HYPERTENSION
     Dosage: 01 DF (160 MG VALS AND 5MG AMLO), DAILY
     Route: 048
     Dates: start: 20060101

REACTIONS (2)
  - DEATH [None]
  - INFLUENZA [None]
